FAERS Safety Report 24987822 (Version 1)
Quarter: 2025Q1

REPORT INFORMATION
  Report Type: Report from Study
  Country: CA (occurrence: CA)
  Receive Date: 20250219
  Receipt Date: 20250219
  Transmission Date: 20250408
  Serious: Yes (Hospitalization)
  Sender: ABBVIE
  Company Number: CA-ABBVIE-6133396

PATIENT
  Age: 58 Year
  Sex: Female

DRUGS (1)
  1. HUMIRA [Suspect]
     Active Substance: ADALIMUMAB
     Indication: Hidradenitis
     Route: 058
     Dates: start: 20240417

REACTIONS (13)
  - Hypophagia [Unknown]
  - Nasal congestion [Unknown]
  - Cough [Unknown]
  - Fatigue [Unknown]
  - Dehydration [Unknown]
  - Hypovolaemia [Unknown]
  - Hyponatraemia [Unknown]
  - Carbon dioxide decreased [Unknown]
  - Gram stain positive [Unknown]
  - Lung disorder [Unknown]
  - Acute kidney injury [Unknown]
  - Asthenia [Unknown]
  - Lethargy [Unknown]
